FAERS Safety Report 15881486 (Version 4)
Quarter: 2019Q1

REPORT INFORMATION
  Report Type: Spontaneous
  Country: DE (occurrence: DE)
  Receive Date: 20190128
  Receipt Date: 20190215
  Transmission Date: 20190417
  Serious: Yes (Hospitalization, Other)
  Sender: FDA-Public Use
  Company Number: PHHY2019DE016983

PATIENT
  Sex: Female
  Weight: 2.55 kg

DRUGS (4)
  1. FOLIC ACID. [Suspect]
     Active Substance: FOLIC ACID
     Indication: FOETAL EXPOSURE DURING PREGNANCY
     Route: 064
  2. VALPROATE SODIUM. [Suspect]
     Active Substance: VALPROATE SODIUM
     Indication: FOETAL EXPOSURE DURING PREGNANCY
     Dosage: MATERNAL DOSE: 1000 MG, 1/2-0-1
     Route: 064
  3. LAMOTRIGINE. [Suspect]
     Active Substance: LAMOTRIGINE
     Indication: FOETAL EXPOSURE DURING PREGNANCY
     Dosage: MATERNAL DOSE: 100 MG, BID (1-0-1)
     Route: 064
  4. VALPROATE SODIUM. [Suspect]
     Active Substance: VALPROATE SODIUM
     Dosage: MATERRNAL DOSE: 1500 MG, QD (1/2-0-1 PER DAY)
     Route: 064

REACTIONS (15)
  - Foetal exposure during pregnancy [Unknown]
  - Low set ears [Unknown]
  - Dysmorphism [Unknown]
  - Meningomyelocele [Unknown]
  - Congenital nose malformation [Unknown]
  - Ill-defined disorder [Unknown]
  - Talipes [Unknown]
  - Spina bifida [Unknown]
  - Arnold-Chiari malformation [Unknown]
  - Skull malformation [Unknown]
  - Foetal anticonvulsant syndrome [Recovering/Resolving]
  - Premature baby [Unknown]
  - Paralysis [Unknown]
  - Microcephaly [Unknown]
  - Lip disorder [Unknown]
